FAERS Safety Report 8864233 (Version 1)
Quarter: 2012Q4

REPORT INFORMATION
  Report Type: 
  Country: US (occurrence: US)
  Receive Date: 20121024
  Receipt Date: 20121024
  Transmission Date: 20130627
  Serious: No
  Sender: FDA-Public Use
  Company Number: US-AMGEN-USASP2011066623

PATIENT
  Age: 46 Year
  Sex: Male
  Weight: 71.66 kg

DRUGS (7)
  1. ENBREL [Suspect]
     Indication: PRODUCT USED FOR UNKNOWN INDICATION
     Dosage: 50 mg, qwk
     Route: 058
  2. KLONOPIN [Concomitant]
     Dosage: 2 mg, UNK
     Route: 048
  3. GABAPENTIN [Concomitant]
     Dosage: 300 mg, UNK
     Route: 048
  4. ADVAIR [Concomitant]
     Dosage: UNK
  5. FENTANYL CITRATE [Concomitant]
     Dosage: 250 mug, UNK
  6. PROAIR HFA [Concomitant]
     Dosage: UNK
  7. PERCOCET                           /00446701/ [Concomitant]
     Dosage: 325 mg, UNK
     Route: 048

REACTIONS (1)
  - Headache [Unknown]
